FAERS Safety Report 21005423 (Version 1)
Quarter: 2022Q2

REPORT INFORMATION
  Report Type: Spontaneous
  Country: CN (occurrence: CN)
  Receive Date: 20220624
  Receipt Date: 20220624
  Transmission Date: 20220721
  Serious: Yes (Hospitalization, Other)
  Sender: FDA-Public Use
  Company Number: None

PATIENT
  Age: 0 Year
  Sex: Male
  Weight: 7 kg

DRUGS (6)
  1. CYCLOPHOSPHAMIDE [Suspect]
     Active Substance: CYCLOPHOSPHAMIDE
     Indication: Retinoblastoma
     Dosage: 0.590000 G ONCE DAILY,CYCLOPHOSPHAMIDE (0.59G)+SODIUM CHLORIDE (100ML) VIA INTRA-PUMP INJECTION
     Route: 065
     Dates: start: 20220610, end: 20220614
  2. ETOPOSIDE [Suspect]
     Active Substance: ETOPOSIDE
     Indication: Retinoblastoma
     Dosage: 125.000 MILLIGRAM, QD,ETOPOSIDE (125MG)+SODIUM CHLORIDE (500ML) VIA INTRA-PUMP INJECTION
     Route: 065
     Dates: start: 20220610, end: 20220614
  3. CARBOPLATIN [Suspect]
     Active Substance: CARBOPLATIN
     Indication: Retinoblastoma
     Dosage: 92.000000 MG ONCE DAILY,CARBOPLATIN (92MG)+GLUCOSE (100ML) VIA INTRA-PUMP INJECTION
     Route: 065
     Dates: start: 20220610, end: 20220614
  4. SODIUM CHLORIDE [Suspect]
     Active Substance: SODIUM CHLORIDE
     Indication: Medication dilution
     Dosage: 500.000000ML ONCE DAILY,ETOPOSIDE (125MG)+SODIUM CHLORIDE (500ML) VIA INTRA-PUMP INJECTION
     Route: 065
     Dates: start: 20220610, end: 20220614
  5. SODIUM CHLORIDE [Suspect]
     Active Substance: SODIUM CHLORIDE
     Dosage: 100.000000MG ONCE DAILY,,CYCLOPHOSPHAMIDE (0.59G)+SODIUM CHLORIDE (100ML) VIA INTRA-PUMP INJECTION
     Route: 065
     Dates: start: 20220610, end: 20220614
  6. DEXTROSE [Suspect]
     Active Substance: DEXTROSE
     Indication: Medication dilution
     Dosage: 100.000000MG ONCE DAILY,CARBOPLATIN (92MG)+GLUCOSE (100ML) VIA INTRA-PUMP INJECTION
     Route: 065
     Dates: start: 20220610, end: 20220614

REACTIONS (1)
  - Bicytopenia [Unknown]

NARRATIVE: CASE EVENT DATE: 20220617
